FAERS Safety Report 14286334 (Version 3)
Quarter: 2018Q1

REPORT INFORMATION
  Report Type: Spontaneous
  Country: JP (occurrence: JP)
  Receive Date: 20171214
  Receipt Date: 20180123
  Transmission Date: 20180509
  Serious: Yes (Other)
  Sender: FDA-Public Use
  Company Number: JP-ASTELLAS-2017JP024210AA

PATIENT
  Age: 12 Year
  Sex: Male
  Weight: 51 kg

DRUGS (18)
  1. POLYMYXIN B. [Suspect]
     Active Substance: POLYMYXIN B
     Indication: FEBRILE NEUTROPENIA
  2. FUNGUARD [Suspect]
     Active Substance: MICAFUNGIN SODIUM
     Indication: C-REACTIVE PROTEIN INCREASED
  3. MEROPENEM. [Suspect]
     Active Substance: MEROPENEM
     Indication: NEUTROPENIA
     Dosage: 0.5 G, THRICE DAILY
     Route: 042
     Dates: start: 20161216, end: 20161230
  4. CEFOZOPRAN HYDROCHLORIDE [Concomitant]
     Active Substance: CEFOZOPRAN HYDROCHLORIDE
     Indication: SINUSITIS
  5. FLUCONAZOLE. [Concomitant]
     Active Substance: FLUCONAZOLE
     Indication: NEUTROPENIA
     Route: 048
     Dates: start: 20161214, end: 20161227
  6. FUNGUARD [Suspect]
     Active Substance: MICAFUNGIN SODIUM
     Indication: FEBRILE NEUTROPENIA
  7. ZOSYN [Suspect]
     Active Substance: PIPERACILLIN SODIUM\TAZOBACTAM SODIUM
     Indication: FEBRILE NEUTROPENIA
     Route: 042
     Dates: start: 20161230, end: 20170101
  8. OMEGACIN [Suspect]
     Active Substance: BIAPENEM
     Indication: NEUTROPENIC COLITIS
     Dosage: 0.6 G, TWICE DAILY
     Route: 042
     Dates: start: 20170101, end: 20170114
  9. VANCOMYCIN [Suspect]
     Active Substance: VANCOMYCIN
     Route: 042
     Dates: start: 20170105, end: 20170112
  10. MEROPENEM. [Suspect]
     Active Substance: MEROPENEM
     Indication: FEBRILE NEUTROPENIA
  11. POLYMYXIN B. [Suspect]
     Active Substance: POLYMYXIN B
     Indication: NEUTROPENIC COLITIS
     Route: 048
     Dates: start: 20170104, end: 20170110
  12. CEFOZOPRAN HYDROCHLORIDE [Concomitant]
     Active Substance: CEFOZOPRAN HYDROCHLORIDE
     Indication: NEUTROPHIL COUNT DECREASED
     Dosage: UNK UNK, UNKNOWN FREQ.
     Route: 065
  13. DAIPHEN [Suspect]
     Active Substance: SULFAMETHOXAZOLE\TRIMETHOPRIM
     Indication: NEUTROPENIA
     Dosage: 1 DF, TWICE DAILY, TAKING FOR 3 DAYS, TAKING FOR 4 DAYS
     Route: 048
     Dates: start: 20161216
  14. VANCOMYCIN [Suspect]
     Active Substance: VANCOMYCIN
     Indication: NEUTROPENIC COLITIS
     Dosage: 3.0 G, 4 TIMES DAILY
     Route: 042
     Dates: start: 20170103, end: 20170104
  15. FUNGUARD [Suspect]
     Active Substance: MICAFUNGIN SODIUM
     Indication: PYREXIA
     Route: 042
     Dates: start: 20161227, end: 20161230
  16. OMEGACIN [Suspect]
     Active Substance: BIAPENEM
     Indication: FEBRILE NEUTROPENIA
  17. VANCOMYCIN [Suspect]
     Active Substance: VANCOMYCIN
     Indication: FEBRILE NEUTROPENIA
     Dosage: 3.0 G, 4 TIMES DAILY
     Route: 042
     Dates: start: 20161217, end: 20161230
  18. AMBISOME [Concomitant]
     Active Substance: AMPHOTERICIN B
     Indication: FEBRILE NEUTROPENIA
     Route: 042
     Dates: start: 20161230, end: 20170119

REACTIONS (2)
  - Neutropenic colitis [Unknown]
  - Clostridium difficile colitis [Recovered/Resolved]

NARRATIVE: CASE EVENT DATE: 20170104
